FAERS Safety Report 9915990 (Version 2)
Quarter: 2014Q1

REPORT INFORMATION
  Report Type: Spontaneous
  Country: JP (occurrence: JP)
  Receive Date: 20140221
  Receipt Date: 20140221
  Transmission Date: 20141002
  Serious: Yes (Hospitalization)
  Sender: FDA-Public Use
  Company Number: JP-BAYER-2013-036190

PATIENT
  Age: 78 Year
  Sex: Male

DRUGS (4)
  1. ACETYLSALICYLIC ACID({=100 MG) [Suspect]
     Indication: MYOCARDIAL INFARCTION
     Dosage: 81 MG, QD
     Route: 048
  2. ACETYLSALICYLIC ACID({=100 MG) [Interacting]
     Indication: ATRIAL FIBRILLATION
  3. WARFARIN [Interacting]
     Indication: MYOCARDIAL INFARCTION
     Dosage: 1 MG, QD
     Route: 048
  4. WARFARIN [Interacting]
     Indication: ATRIAL FIBRILLATION

REACTIONS (3)
  - Subdural haematoma [Recovered/Resolved]
  - Brain compression [Recovered/Resolved]
  - Labelled drug-drug interaction medication error [None]
